FAERS Safety Report 18998251 (Version 1)
Quarter: 2021Q1

REPORT INFORMATION
  Report Type: Spontaneous
  Country: CN (occurrence: CN)
  Receive Date: 20210311
  Receipt Date: 20210311
  Transmission Date: 20210420
  Serious: Yes (Hospitalization, Other)
  Sender: FDA-Public Use
  Company Number: CN-ASTRAZENECA-2021A030040

PATIENT
  Sex: Male
  Weight: 90 kg

DRUGS (2)
  1. IMFINZI [Suspect]
     Active Substance: DURVALUMAB
     Indication: BLADDER CANCER
     Route: 041
     Dates: start: 20200716, end: 20201010
  2. PIRARUBICIN [Concomitant]
     Active Substance: PIRARUBICIN
     Indication: BLADDER CANCER
     Dosage: DAILY DOSE OF 40MG OR 50MG
     Dates: start: 20200719, end: 20200903

REACTIONS (14)
  - Asthenia [Recovering/Resolving]
  - Chest discomfort [Recovering/Resolving]
  - Anhidrosis [Recovering/Resolving]
  - Skin exfoliation [Recovering/Resolving]
  - Blood creatinine increased [Not Recovered/Not Resolved]
  - Renal impairment [Recovering/Resolving]
  - Hypothyroidism [Recovering/Resolving]
  - Blood lactate dehydrogenase increased [Not Recovered/Not Resolved]
  - Somnolence [Unknown]
  - Dyspnoea [Recovering/Resolving]
  - Aspartate aminotransferase increased [Not Recovered/Not Resolved]
  - Hepatic function abnormal [Recovering/Resolving]
  - Blood creatine phosphokinase increased [Not Recovered/Not Resolved]
  - Blood uric acid increased [Not Recovered/Not Resolved]
